FAERS Safety Report 9814742 (Version 1)
Quarter: 2014Q1

REPORT INFORMATION
  Report Type: Spontaneous
  Country: US (occurrence: US)
  Receive Date: 20140113
  Receipt Date: 20140113
  Transmission Date: 20141002
  Serious: No
  Sender: FDA-Public Use
  Company Number: US-SANOFI-AVENTIS-2013SA056496

PATIENT
  Age: 51 Year
  Sex: Female

DRUGS (6)
  1. TAXOTERE [Suspect]
     Indication: CHEMOTHERAPY
  2. HERCEPTIN [Suspect]
     Indication: BREAST CANCER
  3. ALL OTHER THERAPEUTIC PRODUCTS [Suspect]
     Indication: BREAST CANCER
  4. ATIVAN [Concomitant]
     Indication: ANXIETY
  5. AMBIEN [Suspect]
     Indication: SLEEP DISORDER
  6. VISINE [Concomitant]
     Indication: OCULAR HYPERAEMIA

REACTIONS (1)
  - Madarosis [Not Recovered/Not Resolved]
